APPROVED DRUG PRODUCT: SAXAGLIPTIN
Active Ingredient: SAXAGLIPTIN HYDROCHLORIDE
Strength: EQ 5MG BASE
Dosage Form/Route: TABLET;ORAL
Application: A205980 | Product #002 | TE Code: AB
Applicant: MYLAN PHARMACEUTICALS INC
Approved: Jul 31, 2023 | RLD: No | RS: Yes | Type: RX